FAERS Safety Report 8511357-4 (Version None)
Quarter: 2012Q3

REPORT INFORMATION
  Report Type: 
  Country: None (occurrence: None)
  Receive Date: 20120716
  Receipt Date: 20120709
  Transmission Date: 20120928
  Serious: Yes (Other)
  Sender: FDA-Public Use
  Company Number: JP-ASTELLAS-2012JP006379

PATIENT
  Age: 57 Year
  Sex: Male

DRUGS (6)
  1. MESALAMINE [Concomitant]
     Indication: COLITIS ULCERATIVE
     Dosage: 4 G, UNKNOWN/D
     Route: 065
     Dates: start: 20100101
  2. PREDNISOLONE [Concomitant]
     Indication: COLITIS ULCERATIVE
     Dosage: UNK
     Route: 065
     Dates: start: 20110101, end: 20110101
  3. PREDNISOLONE [Concomitant]
     Dosage: UNK
     Route: 065
     Dates: start: 20110101, end: 20110101
  4. PREDNISOLONE [Concomitant]
     Dosage: UNK
     Route: 065
     Dates: start: 20110101, end: 20110101
  5. PROGRAF [Suspect]
     Indication: COLITIS ULCERATIVE
     Dosage: UNK
     Route: 065
     Dates: start: 20110101
  6. BETAMETHASONE [Concomitant]
     Indication: COLITIS ULCERATIVE
     Dosage: UNK
     Route: 054
     Dates: start: 20100101

REACTIONS (2)
  - COLITIS ULCERATIVE [None]
  - DRUG INEFFECTIVE [None]
